FAERS Safety Report 4759112-5 (Version None)
Quarter: 2005Q3

REPORT INFORMATION
  Report Type: 
  Country: None (occurrence: None)
  Receive Date: 20050826
  Receipt Date: 20050815
  Transmission Date: 20060218
  Serious: Yes (Hospitalization, Other)
  Sender: FDA-Public Use
  Company Number: HQWYE434425JUL05

PATIENT
  Age: 27 Year
  Sex: Female
  Weight: 67.3 kg

DRUGS (7)
  1. RAPAMUNE [Suspect]
     Indication: PROPHYLAXIS AGAINST TRANSPLANT REJECTION
     Dosage: 20 MG 1X PER 1 DAY, ORAL
     Route: 048
     Dates: start: 20050703, end: 20050729
  2. PREDNISONE [Concomitant]
  3. SEPTRA [Concomitant]
  4. NYSTATIN [Concomitant]
  5. LOPRESSOR [Concomitant]
  6. NORVASC [Concomitant]
  7. ACYCLOVIR [Concomitant]

REACTIONS (3)
  - DRUG LEVEL DECREASED [None]
  - KIDNEY TRANSPLANT REJECTION [None]
  - THERAPY NON-RESPONDER [None]
